FAERS Safety Report 5160982-X (Version None)
Quarter: 2006Q4

REPORT INFORMATION
  Report Type: 
  Country: None (occurrence: None)
  Receive Date: 20061130
  Receipt Date: 20060522
  Transmission Date: 20070319
  Serious: No
  Sender: FDA-Public Use
  Company Number: US-BRISTOL-MYERS SQUIBB COMPANY-13433438

PATIENT
  Sex: Male

DRUGS (2)
  1. AVALIDE [Suspect]
     Indication: BLOOD PRESSURE INCREASED
     Dosage: DOSAGE: ^300 MG / 12 MG^
     Dates: end: 20060501
  2. NIASPAN [Concomitant]

REACTIONS (1)
  - OEDEMA PERIPHERAL [None]
